FAERS Safety Report 13033931 (Version 1)
Quarter: 2016Q4

REPORT INFORMATION
  Report Type: Spontaneous
  Country: US (occurrence: US)
  Receive Date: 20161215
  Receipt Date: 20161215
  Transmission Date: 20170207
  Serious: No
  Sender: FDA-Public Use
  Company Number: None

PATIENT
  Age: 62 Year
  Sex: Male

DRUGS (1)
  1. HUMIRA [Suspect]
     Active Substance: ADALIMUMAB
     Indication: RHEUMATOID ARTHRITIS
     Dosage: 40MG EVERY 2 WEEKS INJECT
     Dates: start: 20160112, end: 20161120

REACTIONS (4)
  - Swelling [None]
  - Pain [None]
  - Arthritis [None]
  - Inflammation [None]

NARRATIVE: CASE EVENT DATE: 20161120
